FAERS Safety Report 21175756 (Version 2)
Quarter: 2022Q3

REPORT INFORMATION
  Report Type: Report from Study
  Country: EG (occurrence: EG)
  Receive Date: 20220805
  Receipt Date: 20220810
  Transmission Date: 20221027
  Serious: Yes (Other)
  Sender: FDA-Public Use
  Company Number: EG-NOVARTISPH-NVSC2022EG176207

PATIENT
  Sex: Male

DRUGS (4)
  1. EXFORGE [Suspect]
     Active Substance: AMLODIPINE BESYLATE\VALSARTAN
     Indication: Hypertension
     Dosage: 1 DOSAGE FORM, QD  (160/25 MG)(ONE TAB/DAY (BEFORE BREAKFAST), (10MG/160MG/25MG)
     Route: 065
     Dates: start: 2014
  2. GLIVEC [Concomitant]
     Active Substance: IMATINIB MESYLATE
     Indication: Chronic myeloid leukaemia
     Dosage: 400 MG, QD, (ONE TAB/DAY)
     Route: 048
     Dates: start: 20220726
  3. MIXTARD HUMAN 70/30 [Concomitant]
     Active Substance: INSULIN HUMAN
     Indication: Diabetes mellitus
     Dosage: UNK
     Route: 058
     Dates: start: 2009
  4. HYDREA [Concomitant]
     Active Substance: HYDROXYUREA
     Indication: Chronic myeloid leukaemia
     Dosage: UNK
     Route: 048

REACTIONS (8)
  - Eye haemorrhage [Not Recovered/Not Resolved]
  - Chronic myeloid leukaemia [Not Recovered/Not Resolved]
  - White blood cell count increased [Recovered/Resolved]
  - Weight decreased [Recovering/Resolving]
  - Dizziness [Recovering/Resolving]
  - Fatigue [Recovering/Resolving]
  - Eye pain [Not Recovered/Not Resolved]
  - Visual impairment [Not Recovered/Not Resolved]

NARRATIVE: CASE EVENT DATE: 20220101
